FAERS Safety Report 5592957-0 (Version None)
Quarter: 2008Q1

REPORT INFORMATION
  Report Type: 
  Country: None (occurrence: None)
  Receive Date: 20080116
  Receipt Date: 20080102
  Transmission Date: 20080703
  Serious: Yes (Other)
  Sender: FDA-Public Use
  Company Number: US-ELI_LILLY_AND_COMPANY-US200712004319

PATIENT
  Sex: Female

DRUGS (3)
  1. FORTEO [Suspect]
     Indication: OSTEOPOROSIS
     Dosage: 20 UG, DAILY (1/D)
     Dates: start: 20060201, end: 20071201
  2. SIMVASTATIN [Concomitant]
     Dosage: 40 MG, DAILY (1/D)
  3. PRILOSEC [Concomitant]
     Dosage: 20 MG, DAILY (1/D)

REACTIONS (9)
  - CARDIOMYOPATHY [None]
  - EJECTION FRACTION DECREASED [None]
  - FEELING ABNORMAL [None]
  - INJECTION SITE BRUISING [None]
  - INJECTION SITE ERYTHEMA [None]
  - INJECTION SITE PAIN [None]
  - LOSS OF CONSCIOUSNESS [None]
  - NAUSEA [None]
  - VIRAL INFECTION [None]
